FAERS Safety Report 8455874-4 (Version None)
Quarter: 2012Q2

REPORT INFORMATION
  Report Type: 
  Country: None (occurrence: None)
  Receive Date: 20120621
  Receipt Date: 20120612
  Transmission Date: 20120825
  Serious: Yes (Other)
  Sender: FDA-Public Use
  Company Number: US-ASTRAZENECA-2012SE39136

PATIENT
  Age: 77 Year
  Sex: Male
  Weight: 68 kg

DRUGS (5)
  1. CRESTOR [Suspect]
     Route: 048
  2. OMEPRAZOLE [Concomitant]
     Indication: HIATUS HERNIA
  3. GLUCOSAMINE AND CHONDROITIN [Concomitant]
     Indication: ARTHRITIS
     Dosage: 1500/1200 MG, TWO TABLETS DAILY
  4. METOPROLOL [Concomitant]
     Indication: PULSE ABNORMAL
  5. CRESTOR [Suspect]
     Indication: BLOOD CHOLESTEROL INCREASED
     Route: 048
     Dates: end: 20120101

REACTIONS (2)
  - RASH GENERALISED [None]
  - PRURITUS [None]
